FAERS Safety Report 12614326 (Version 1)
Quarter: 2016Q3

REPORT INFORMATION
  Report Type: Spontaneous
  Country: FR (occurrence: FR)
  Receive Date: 20160802
  Receipt Date: 20160802
  Transmission Date: 20161109
  Serious: No
  Sender: FDA-Public Use
  Company Number: FR-JAZZ-JPI-P-008206

PATIENT
  Age: 45 Year
  Sex: Female

DRUGS (3)
  1. MODAFINIL. [Concomitant]
     Active Substance: MODAFINIL
     Dates: start: 20030401
  2. XYREM [Suspect]
     Active Substance: SODIUM OXYBATE
     Indication: CATAPLEXY
     Dosage: 4.5 G, QD
     Route: 048
     Dates: start: 20101021
  3. XYREM [Suspect]
     Active Substance: SODIUM OXYBATE
     Indication: NARCOLEPSY
     Dosage: 4.5 G, BID
     Route: 048
     Dates: start: 20090415, end: 20101020

REACTIONS (9)
  - Malaise [Recovered/Resolved]
  - Muscle spasms [Unknown]
  - Abnormal behaviour [Unknown]
  - Confusional arousal [Unknown]
  - Weight increased [Unknown]
  - Snoring [Unknown]
  - Off label use [Unknown]
  - Abnormal sleep-related event [Unknown]
  - Somnambulism [Unknown]

NARRATIVE: CASE EVENT DATE: 2009
